FAERS Safety Report 12340024 (Version 1)
Quarter: 2016Q2

REPORT INFORMATION
  Report Type: Spontaneous
  Country: US (occurrence: US)
  Receive Date: 20160506
  Receipt Date: 20160506
  Transmission Date: 20160815
  Serious: Yes (Hospitalization, Disabling)
  Sender: FDA-Public Use
  Company Number: US-HOSPIRA-3271908

PATIENT
  Age: 55 Year
  Sex: Male

DRUGS (2)
  1. LEVOPHED [Suspect]
     Active Substance: NOREPINEPHRINE BITARTRATE
     Indication: HYPOTENSION
     Dosage: 2 AMPULES PER 1000 CC
     Route: 041
  2. GLUCOSE [Concomitant]
     Active Substance: DEXTROSE
     Indication: PRODUCT USED FOR UNKNOWN INDICATION
     Route: 041

REACTIONS (3)
  - Extravasation [Recovered/Resolved]
  - Skin exfoliation [Recovered/Resolved]
  - Osteomyelitis [Recovered/Resolved]
